FAERS Safety Report 20676956 (Version 18)
Quarter: 2023Q1

REPORT INFORMATION
  Report Type: Other
  Country: CA (occurrence: None)
  Receive Date: 20220406
  Receipt Date: 20230306
  Transmission Date: 20230417
  Serious: Yes (Hospitalization, Other)
  Sender: FDA-Public Use
  Company Number: CA-ROCHE-2954571

PATIENT
  Age: 59 Year
  Sex: Female

DRUGS (24)
  1. OCREVUS [Suspect]
     Active Substance: OCRELIZUMAB
     Indication: Relapsing-remitting multiple sclerosis
     Dosage: 300 MG AT DAY 0 AND 14, THEN 600 MG EVERY 6 MONTH
     Route: 042
     Dates: start: 20211103
  2. OCREVUS [Suspect]
     Active Substance: OCRELIZUMAB
     Route: 042
     Dates: start: 20220602
  3. PREDNISONE [Suspect]
     Active Substance: PREDNISONE
     Indication: Product used for unknown indication
     Route: 065
  4. IMATINIB [Concomitant]
     Active Substance: IMATINIB
     Indication: Leukaemia
  5. MODAFINIL [Concomitant]
     Active Substance: MODAFINIL
  6. BACLOFEN [Concomitant]
     Active Substance: BACLOFEN
  7. CITALOPRAM [Concomitant]
     Active Substance: CITALOPRAM HYDROBROMIDE
  8. IRBESARTAN [Concomitant]
     Active Substance: IRBESARTAN
  9. PANTOPRAZOLE [Concomitant]
     Active Substance: PANTOPRAZOLE
  10. TOPIRAMATE [Concomitant]
     Active Substance: TOPIRAMATE
  11. BETAHISTINE [Concomitant]
     Active Substance: BETAHISTINE
  12. METOCLOPRAMIDE [Concomitant]
     Active Substance: METOCLOPRAMIDE
  13. ARIPIPRAZOLE [Concomitant]
     Active Substance: ARIPIPRAZOLE
  14. VITAMIN C [Concomitant]
     Active Substance: ASCORBIC ACID
  15. ZINC [Concomitant]
     Active Substance: ZINC
  16. CLONAZEPAM [Concomitant]
     Active Substance: CLONAZEPAM
  17. SULFATRIM [Concomitant]
     Active Substance: SULFAMETHOXAZOLE\TRIMETHOPRIM
     Dates: start: 2022
  18. DISULFIRAM [Concomitant]
     Active Substance: DISULFIRAM
  19. TOVIAZ [Concomitant]
     Active Substance: FESOTERODINE FUMARATE
  20. MIRABEGRON [Concomitant]
     Active Substance: MIRABEGRON
  21. ARIPIPRAZOLE [Concomitant]
     Active Substance: ARIPIPRAZOLE
  22. CLONAZEPAM [Concomitant]
     Active Substance: CLONAZEPAM
  23. MESTINON [Concomitant]
     Active Substance: PYRIDOSTIGMINE BROMIDE
  24. LASIX [Concomitant]
     Active Substance: FUROSEMIDE

REACTIONS (19)
  - Suicidal ideation [Recovered/Resolved]
  - Infusion related reaction [Recovered/Resolved]
  - Suicidal ideation [Recovered/Resolved]
  - Aortic aneurysm [Unknown]
  - Barrett^s oesophagus [Unknown]
  - Malaise [Recovered/Resolved]
  - Insomnia [Recovered/Resolved]
  - Infusion related reaction [Recovered/Resolved]
  - Headache [Recovered/Resolved]
  - SARS-CoV-2 test positive [Recovered/Resolved]
  - Depression [Unknown]
  - Dizziness [Unknown]
  - Immunodeficiency [Unknown]
  - Dysphagia [Unknown]
  - Infusion related reaction [Unknown]
  - Hypotension [Unknown]
  - Memory impairment [Not Recovered/Not Resolved]
  - Tooth fracture [Not Recovered/Not Resolved]
  - Poor quality sleep [Unknown]

NARRATIVE: CASE EVENT DATE: 20211103
